FAERS Safety Report 13542088 (Version 1)
Quarter: 2017Q2

REPORT INFORMATION
  Report Type: Not Available
  Country: FR (occurrence: FR)
  Receive Date: 20170512
  Receipt Date: 20170512
  Transmission Date: 20170830
  Serious: Yes (Other)
  Sender: FDA-Public Use
  Company Number: FR-MIDATECHPHARMA-2017-FR-000018

PATIENT
  Age: 38 Year
  Sex: Male

DRUGS (6)
  1. MORPHINE [Concomitant]
     Active Substance: MORPHINE
     Dosage: 3 MG EVERY 6 HOURS
     Route: 042
  2. PARACETAMOL [Concomitant]
     Active Substance: ACETAMINOPHEN
     Dosage: 2 G/DAY
     Route: 042
  3. TACROLIMUS. [Suspect]
     Active Substance: TACROLIMUS
     Dosage: 5 MG DAILY
     Route: 065
     Dates: start: 201206, end: 20120906
  4. PIPERACILLIN AND TAZOBACTAM [Concomitant]
     Active Substance: PIPERACILLIN SODIUM\TAZOBACTAM SODIUM
     Route: 042
  5. CIPROFLOXACIN. [Concomitant]
     Active Substance: CIPROFLOXACIN
     Route: 042
  6. ORAVIG [Suspect]
     Active Substance: MICONAZOLE
     Dosage: 50 MG/DAY
     Route: 050
     Dates: start: 20120822, end: 20120904

REACTIONS (8)
  - Peritoneal haemorrhage [Unknown]
  - Cytomegalovirus infection [Unknown]
  - Toxicity to various agents [Unknown]
  - Acute kidney injury [Unknown]
  - Angiosarcoma [Unknown]
  - Device related infection [Unknown]
  - Drug interaction [Unknown]
  - Splenectomy [Unknown]
